FAERS Safety Report 8667753 (Version 2)
Quarter: 2012Q4

REPORT INFORMATION
  Report Type: 
  Country: US (occurrence: US)
  Receive Date: 20120717
  Receipt Date: 20120924
  Transmission Date: 20130627
  Serious: Yes (Hospitalization, Other)
  Sender: FDA-Public Use
  Company Number: US-CELGENEUS-163-21880-12070533

PATIENT
  Age: 57 Year
  Sex: Female
  Weight: 71.73 kg

DRUGS (40)
  1. REVLIMID [Suspect]
     Indication: MULTIPLE MYELOMA
     Dosage: 25 Milligram
     Route: 048
     Dates: start: 201003
  2. THALOMID [Suspect]
     Indication: MULTIPLE MYELOMA
     Dosage: 50 Milligram
     Route: 048
     Dates: start: 201207
  3. DECADRON [Concomitant]
     Indication: MULTIPLE MYELOMA
     Dosage: 40 Milligram
     Route: 065
  4. DECADRON [Concomitant]
     Dosage: 20 Milligram
     Route: 065
  5. VELCADE [Concomitant]
     Indication: MULTIPLE MYELOMA
     Dosage: 1.3 milligram/sq. meter
     Route: 058
     Dates: start: 20111026
  6. CYTOXAN [Concomitant]
     Indication: MULTIPLE MYELOMA
     Dosage: 500 milligram/sq. meter
     Route: 065
     Dates: start: 20120201
  7. AF-ASPIRIN CHILDRENS [Concomitant]
     Indication: DRUG USE FOR UNKNOWN INDICATION
     Dosage: 81 Milligram
     Route: 048
  8. ATIVAN [Concomitant]
     Indication: NAUSEA
     Dosage: .5 Milligram
     Route: 048
  9. ATIVAN [Concomitant]
     Indication: VOMITING
  10. COMPAZINE [Concomitant]
     Indication: NAUSEA
     Route: 048
  11. COMPAZINE [Concomitant]
     Indication: VOMITING
  12. IRON [Concomitant]
     Indication: DRUG USE FOR UNKNOWN INDICATION
     Dosage: 975 Milligram
     Route: 048
  13. VITAMIN B-6 [Concomitant]
     Indication: DRUG USE FOR UNKNOWN INDICATION
     Dosage: 100 Milligram
     Route: 048
  14. VITAMIN C [Concomitant]
     Indication: DRUG USE FOR UNKNOWN INDICATION
     Dosage: 500 Milligram
     Route: 048
  15. KLOR-CON [Concomitant]
     Indication: DRUG USE FOR UNKNOWN INDICATION
     Dosage: 20meq qpm + 40meq qam
     Route: 065
  16. MAGNESIUM [Concomitant]
     Indication: DRUG USE FOR UNKNOWN INDICATION
     Dosage: 400 Milligram
     Route: 048
  17. METFORMIN HCL [Concomitant]
     Indication: DRUG USE FOR UNKNOWN INDICATION
     Dosage: 1000 Milligram
     Route: 048
  18. METOPROLOL TARTRATE [Concomitant]
     Indication: DRUG USE FOR UNKNOWN INDICATION
     Dosage: 100 Milligram
     Route: 048
  19. MYLANTA [Concomitant]
     Indication: DRUG USE FOR UNKNOWN INDICATION
     Dosage: 200-200-20mg/5ml; 30ml every 4 hrs. prn
     Route: 065
  20. NEURONTIN [Concomitant]
     Indication: NEUROPATHIC PAIN
     Dosage: 900 Milligram
     Route: 048
  21. OXYCODONE HCL [Concomitant]
     Indication: DRUG USE FOR UNKNOWN INDICATION
     Route: 048
  22. PANTOPRAZOLE SODIUM [Concomitant]
     Indication: DRUG USE FOR UNKNOWN INDICATION
     Dosage: 40 Milligram
     Route: 065
  23. ZOMETA [Concomitant]
     Indication: DRUG USE FOR UNKNOWN INDICATION
     Dosage: 4mg/5ml
     Route: 041
  24. VALTREX [Concomitant]
     Indication: HERPES ZOSTER
     Route: 065
  25. VALTREX [Concomitant]
     Dosage: 1 Gram
     Route: 048
  26. ASA [Concomitant]
     Indication: DVT PROPHYLAXIS
     Route: 065
  27. BISPHOSPHONATES [Concomitant]
     Indication: HYPERCALCEMIA
     Route: 065
  28. CALCIUM CARBONATE + VITAMIN D [Concomitant]
     Indication: DRUG USE FOR UNKNOWN INDICATION
     Dosage: 1 Tablet
     Route: 048
  29. LOPERAMIDE HCL [Concomitant]
     Indication: DRUG USE FOR UNKNOWN INDICATION
     Route: 048
  30. LOPRESSOR [Concomitant]
     Indication: BLOOD PRESSURE
     Dosage: 50 Milligram
     Route: 048
  31. POTASSIUM CHLORIDE [Concomitant]
     Indication: DRUG USE FOR UNKNOWN INDICATION
     Dosage: 20 Milliequivalents
     Route: 048
  32. THALIDOMIDE [Concomitant]
     Indication: DRUG USE FOR UNKNOWN INDICATION
     Route: 048
  33. CEFEPIME [Concomitant]
     Indication: NEUTROPENIA
     Route: 065
  34. VANCOMYCIN [Concomitant]
     Indication: NEUTROPENIA
     Route: 065
  35. DIFLUCAN [Concomitant]
     Indication: NEUTROPENIA
     Route: 065
  36. BORTEZOMIB [Concomitant]
     Indication: MULTIPLE MYELOMA
     Route: 065
  37. DOXORUBICIN [Concomitant]
     Indication: MULTIPLE MYELOMA
     Route: 065
  38. ETOPOSIDE [Concomitant]
     Indication: MULTIPLE MYELOMA
     Route: 065
  39. ASCORBIC ACID [Concomitant]
     Indication: DRUG USE FOR UNKNOWN INDICATION
     Route: 065
  40. AMBIEN [Concomitant]
     Indication: INSOMNIA
     Route: 065

REACTIONS (4)
  - Human chorionic gonadotropin increased [Unknown]
  - Plasma cell myeloma [Unknown]
  - Renal failure acute [Unknown]
  - Pancytopenia [Unknown]
